FAERS Safety Report 4988207-6 (Version None)
Quarter: 2006Q2

REPORT INFORMATION
  Report Type: 
  Country: None (occurrence: None)
  Receive Date: 20060501
  Receipt Date: 20060421
  Transmission Date: 20061013
  Serious: Yes (Hospitalization, Disabling)
  Sender: FDA-Public Use
  Company Number: US-MERCK-0604USA03647

PATIENT
  Age: 61 Year
  Sex: Male
  Weight: 68 kg

DRUGS (4)
  1. VIOXX [Suspect]
     Indication: ARTHRITIS
     Route: 048
     Dates: start: 20030801, end: 20041001
  2. VIAGRA [Concomitant]
     Route: 065
  3. RANITIDINE [Concomitant]
     Route: 065
  4. TRAMADOLOR [Concomitant]
     Route: 065

REACTIONS (2)
  - ANXIETY [None]
  - MYOCARDIAL INFARCTION [None]
